FAERS Safety Report 9019922 (Version 1)
Quarter: 2013Q1

REPORT INFORMATION
  Report Type: Spontaneous
  Country: KR (occurrence: KR)
  Receive Date: 20130118
  Receipt Date: 20130118
  Transmission Date: 20140127
  Serious: Yes (Hospitalization)
  Sender: FDA-Public Use
  Company Number: KR-009507513-1301KOR003203

PATIENT
  Age: 55 Year
  Sex: Male

DRUGS (7)
  1. COZAAR [Suspect]
     Indication: ESSENTIAL HYPERTENSION
     Dosage: UNK
     Route: 048
     Dates: start: 2003, end: 201209
  2. NORVASC [Concomitant]
     Indication: ESSENTIAL HYPERTENSION
  3. ASTRIX [Concomitant]
     Indication: ESSENTIAL HYPERTENSION
  4. CONCOR [Concomitant]
  5. MICARDIS [Concomitant]
  6. LASIX (FUROSEMIDE) [Concomitant]
  7. ALDACTONE TABLETS [Concomitant]
     Dosage: 1 DF, BID

REACTIONS (5)
  - Myocardial ischaemia [Unknown]
  - Weight increased [Not Recovered/Not Resolved]
  - Breast disorder [Not Recovered/Not Resolved]
  - Breast pain [Not Recovered/Not Resolved]
  - Gynaecomastia [Not Recovered/Not Resolved]
